FAERS Safety Report 6322602-8 (Version None)
Quarter: 2009Q3

REPORT INFORMATION
  Report Type: 
  Country: None (occurrence: None)
  Receive Date: 20090824
  Receipt Date: 20090302
  Transmission Date: 20100115
  Serious: No
  Sender: FDA-Public Use
  Company Number: US-ABBOTT-09P-163-0560214-00

PATIENT
  Sex: Female

DRUGS (3)
  1. NIASPAN [Suspect]
     Indication: DRUG USE FOR UNKNOWN INDICATION
     Route: 048
     Dates: start: 20090227, end: 20090228
  2. ATACAND [Concomitant]
     Indication: DRUG USE FOR UNKNOWN INDICATION
  3. PROTONIX [Concomitant]
     Indication: DRUG USE FOR UNKNOWN INDICATION

REACTIONS (3)
  - EAR PAIN [None]
  - FEELING OF BODY TEMPERATURE CHANGE [None]
  - OROPHARYNGEAL PAIN [None]
